FAERS Safety Report 9784248 (Version 1)
Quarter: 2013Q4

REPORT INFORMATION
  Report Type: Spontaneous
  Country: US (occurrence: US)
  Receive Date: 20131226
  Receipt Date: 20131226
  Transmission Date: 20140711
  Serious: No
  Sender: FDA-Public Use
  Company Number: US-BIOGENIDEC-2013BI121469

PATIENT
  Age: 61 Year
  Sex: Female

DRUGS (14)
  1. TECFIDERA [Suspect]
     Indication: MULTIPLE SCLEROSIS
     Route: 048
     Dates: start: 20130823
  2. NORITRATE [Concomitant]
  3. LOTREL [Concomitant]
  4. VAGIFEM [Concomitant]
  5. BACLOFEN [Concomitant]
  6. OXAZEPAM [Concomitant]
  7. NEXIUM [Concomitant]
  8. CLONAZEPAM [Concomitant]
  9. CALCIUM [Concomitant]
  10. BUTRANS [Concomitant]
  11. LACTOSE [Concomitant]
  12. VITAMIN D [Concomitant]
  13. NYSTATIN [Concomitant]
  14. DOMPERIDONE [Concomitant]

REACTIONS (1)
  - Influenza like illness [Unknown]
